FAERS Safety Report 6543150-6 (Version None)
Quarter: 2010Q1

REPORT INFORMATION
  Report Type: 
  Country: None (occurrence: None)
  Receive Date: 20100120
  Receipt Date: 20100111
  Transmission Date: 20100710
  Serious: Yes (Hospitalization)
  Sender: FDA-Public Use
  Company Number: DE-AMGEN-US385480

PATIENT
  Age: 64 Year
  Sex: Female

DRUGS (3)
  1. ENBREL [Suspect]
     Indication: ANKYLOSING SPONDYLITIS
     Route: 058
     Dates: end: 20091201
  2. ENBREL [Suspect]
     Route: 058
     Dates: start: 20100101
  3. HEPARIN [Concomitant]
     Dosage: 10 ADMINISTRATIONS (UNKNOWN DOSE)

REACTIONS (1)
  - ARTHROSCOPY [None]
